FAERS Safety Report 25745957 (Version 2)
Quarter: 2025Q3

REPORT INFORMATION
  Report Type: Report from Study
  Country: US (occurrence: US)
  Receive Date: 20250901
  Receipt Date: 20250917
  Transmission Date: 20251021
  Serious: Yes (Death, Hospitalization, Other)
  Sender: ACADIA PHARMACEUTICALS
  Company Number: US-ACADIA PHARMACEUTICALS INC.-ACA-2025-PIM-009653

PATIENT
  Age: 89 Year
  Sex: Male
  Weight: 92.063 kg

DRUGS (1)
  1. NUPLAZID [Suspect]
     Active Substance: PIMAVANSERIN TARTRATE
     Indication: Parkinson^s disease
     Dosage: 34 MILLIGRAM, QD
     Route: 048
     Dates: start: 202206

REACTIONS (4)
  - Death [Fatal]
  - Illness [Unknown]
  - Hallucination [Unknown]
  - Hepatic mass [Unknown]

NARRATIVE: CASE EVENT DATE: 20250901
